FAERS Safety Report 5338100-4 (Version None)
Quarter: 2007Q2

REPORT INFORMATION
  Report Type: 
  Country: None (occurrence: None)
  Receive Date: 20070530
  Receipt Date: 20070521
  Transmission Date: 20071010
  Serious: Yes (Other)
  Sender: FDA-Public Use
  Company Number: PHBS2005BR13727

PATIENT
  Age: 42 Year
  Sex: Male
  Weight: 92 kg

DRUGS (4)
  1. CLOZAPINE [Suspect]
     Indication: SCHIZOPHRENIA
     Dosage: 100 MG, QD
     Route: 048
  2. CLOZAPINE [Suspect]
     Dosage: 200 MG/DAY
     Route: 048
     Dates: start: 20010101
  3. CLOZAPINE [Suspect]
     Dosage: 150 MG, QHS
     Route: 048
  4. LEGALON [Concomitant]
     Dosage: 70 MG, QD
     Route: 048

REACTIONS (9)
  - BLOOD PRESSURE INCREASED [None]
  - CARDIAC VENTRICULAR DISORDER [None]
  - DRUG HYPERSENSITIVITY [None]
  - HEPATIC CIRRHOSIS [None]
  - HEPATIC STEATOSIS [None]
  - HEPATIC VEIN OCCLUSION [None]
  - LIVER DISORDER [None]
  - NASAL CONGESTION [None]
  - NEUTROPHIL COUNT DECREASED [None]
